FAERS Safety Report 19956086 (Version 1)
Quarter: 2021Q4

REPORT INFORMATION
  Report Type: Report from Study
  Country: DE (occurrence: DE)
  Receive Date: 20211014
  Receipt Date: 20211014
  Transmission Date: 20220303
  Serious: Yes (Hospitalization)
  Sender: FDA-Public Use
  Company Number: None

PATIENT
  Age: 55 Year
  Sex: Male

DRUGS (7)
  1. AMPHOTERICIN B [Concomitant]
     Active Substance: AMPHOTERICIN B
     Indication: Anaphylactoid reaction
     Dosage: ()
     Dates: start: 20210617, end: 20210618
  2. VANCOMYCIN [Concomitant]
     Active Substance: VANCOMYCIN
     Indication: Adverse event
     Dosage: ()
     Route: 048
     Dates: start: 20210611, end: 20210617
  3. VALACYCLOVIR HYDROCHLORIDE [Concomitant]
     Active Substance: VALACYCLOVIR HYDROCHLORIDE
     Indication: Adverse event
     Dosage: ()
     Route: 048
     Dates: start: 20210527, end: 20210618
  4. UNSPECIFIED INGREDIENT [Suspect]
     Active Substance: UNSPECIFIED INGREDIENT
     Dosage: ()
  5. PIPERACILLIN SODIUM\TAZOBACTAM SODIUM [Suspect]
     Active Substance: PIPERACILLIN SODIUM\TAZOBACTAM SODIUM
     Indication: Adverse event
     Dosage: UNK, QD ()
     Route: 042
     Dates: start: 20210610, end: 20210613
  6. LEVOFLOXACIN [Concomitant]
     Active Substance: LEVOFLOXACIN
     Indication: Adverse event
     Dosage: ()
     Dates: start: 20210606, end: 20210610
  7. AMPHOTERICIN B [Concomitant]
     Active Substance: AMPHOTERICIN B
     Indication: Rash pruritic
     Dates: start: 20210617, end: 20210618

REACTIONS (1)
  - Anaphylactoid reaction [Recovered/Resolved]

NARRATIVE: CASE EVENT DATE: 20210610
